FAERS Safety Report 9324550 (Version 2)
Quarter: 2013Q3

REPORT INFORMATION
  Report Type: Spontaneous
  Country: US (occurrence: US)
  Receive Date: 20130603
  Receipt Date: 20130723
  Transmission Date: 20140515
  Serious: Yes (Hospitalization)
  Sender: FDA-Public Use
  Company Number: US-B.I. PHARMACEUTICALS,INC./RIDGEFIELD-2013-BI-15153BP

PATIENT
  Age: 82 Year
  Sex: Male
  Weight: 68.04 kg

DRUGS (8)
  1. PRADAXA [Suspect]
     Indication: ANTICOAGULANT THERAPY
     Route: 048
     Dates: start: 20110906, end: 20111026
  2. ASPIRIN [Concomitant]
  3. COQ-10 [Concomitant]
  4. DILTIAZEM [Concomitant]
  5. LASIX [Concomitant]
  6. PRAVASTATIN [Concomitant]
  7. LORAZEPAM [Concomitant]
  8. NAMENDA [Concomitant]

REACTIONS (2)
  - Gastrointestinal haemorrhage [Not Recovered/Not Resolved]
  - Anaemia [Unknown]
